FAERS Safety Report 9576292 (Version 1)
Quarter: 2013Q4

REPORT INFORMATION
  Report Type: Spontaneous
  Country: US (occurrence: US)
  Receive Date: 20131001
  Receipt Date: 20131001
  Transmission Date: 20140711
  Serious: No
  Sender: FDA-Public Use
  Company Number: US-AMGEN-USASP2013003053

PATIENT
  Age: 71 Year
  Sex: Female

DRUGS (5)
  1. ENBREL [Suspect]
     Indication: RHEUMATOID ARTHRITIS
     Dosage: 50 MG, QWK
     Route: 058
     Dates: start: 20090909
  2. RAMIPRIL [Concomitant]
     Dosage: 1.25 MG, UNK
  3. LABETALOL [Concomitant]
     Dosage: 100 MG, UNK
  4. BIOTIN [Concomitant]
     Dosage: 10 MG, UNK
  5. ALLEGRA [Concomitant]
     Dosage: 180 MG, UNK

REACTIONS (1)
  - Upper respiratory tract infection [Recovering/Resolving]
